FAERS Safety Report 7809061-0 (Version None)
Quarter: 2011Q4

REPORT INFORMATION
  Report Type: 
  Country: None (occurrence: None)
  Receive Date: 20111012
  Receipt Date: 20111011
  Transmission Date: 20120403
  Serious: Yes (Hospitalization)
  Sender: FDA-Public Use
  Company Number: US-JNJFOC-20100405749

PATIENT
  Sex: Male
  Weight: 91.63 kg

DRUGS (13)
  1. SANDOZ FENTANYL TANSDERMAL SYSTEM [Suspect]
     Dosage: NDC NUMBER 0781-7114-55
     Route: 062
     Dates: start: 20100417
  2. IBUPROFEN [Concomitant]
     Dosage: 800 MG/200 MG/TWO TIMES PER DAY
     Route: 048
  3. SANDOZ FENTANYL TANSDERMAL SYSTEM [Suspect]
     Route: 062
  4. EFFEXOR [Concomitant]
     Indication: DEPRESSION
     Route: 048
  5. AMBIEN CR [Concomitant]
     Indication: SLEEP DISORDER
     Route: 048
  6. FENTANYL-100 [Suspect]
     Route: 062
     Dates: start: 20100401, end: 20100417
  7. SANDOZ FENTANYL TANSDERMAL SYSTEM [Suspect]
     Indication: BACK PAIN
     Route: 062
     Dates: start: 20100101, end: 20100401
  8. SANDOZ FENTANYL TANSDERMAL SYSTEM [Suspect]
     Route: 062
  9. FENTANYL-100 [Suspect]
     Indication: BACK PAIN
     Route: 062
     Dates: start: 20100101, end: 20100401
  10. SANDOZ FENTANYL TANSDERMAL SYSTEM [Suspect]
     Route: 062
  11. EFFEXOR [Concomitant]
     Indication: ANGER
     Route: 048
  12. CLONAZEPAM [Concomitant]
     Indication: BREAKTHROUGH PAIN
     Route: 048
  13. NUCYNTA [Concomitant]
     Indication: BREAKTHROUGH PAIN
     Route: 048

REACTIONS (12)
  - HEART RATE DECREASED [None]
  - DRUG INEFFECTIVE [None]
  - APPLICATION SITE PERSPIRATION [None]
  - INTERVERTEBRAL DISC PROTRUSION [None]
  - WRONG TECHNIQUE IN DRUG USAGE PROCESS [None]
  - APPLICATION SITE REACTION [None]
  - ANAEMIA [None]
  - DRUG ADMINISTERED AT INAPPROPRIATE SITE [None]
  - FEELING ABNORMAL [None]
  - APPLICATION SITE RASH [None]
  - HYPOAESTHESIA [None]
  - PRODUCT QUALITY ISSUE [None]
